FAERS Safety Report 16829790 (Version 1)
Quarter: 2019Q3

REPORT INFORMATION
  Report Type: Report from Study
  Country: US (occurrence: US)
  Receive Date: 20190919
  Receipt Date: 20190919
  Transmission Date: 20191005
  Serious: Yes (Hospitalization)
  Sender: FDA-Public Use
  Company Number: US-ACTELION-A-US2019-195667

PATIENT
  Age: 70 Year
  Sex: Male

DRUGS (14)
  1. FLUDROCORTISONE [Concomitant]
     Active Substance: FLUDROCORTISONE
  2. PREDNISONE. [Concomitant]
     Active Substance: PREDNISONE
  3. LEVEMIR [Concomitant]
     Active Substance: INSULIN DETEMIR
  4. SILDENAFIL. [Concomitant]
     Active Substance: SILDENAFIL
  5. DOXYCYCLIN [Concomitant]
     Active Substance: DOXYCYCLINE
  6. SMZ-TMP [Concomitant]
     Active Substance: SULFAMETHOXAZOLE\TRIMETHOPRIM
  7. TAMSULOSIN [Concomitant]
     Active Substance: TAMSULOSIN
  8. CARAFATE [Concomitant]
     Active Substance: SUCRALFATE
  9. NOVOLOG [Concomitant]
     Active Substance: INSULIN ASPART
  10. PANTOPRAZOLE [Concomitant]
     Active Substance: PANTOPRAZOLE
  11. VORICONAZOLE. [Concomitant]
     Active Substance: VORICONAZOLE
  12. OPSUMIT [Suspect]
     Active Substance: MACITENTAN
     Indication: PULMONARY ARTERIAL HYPERTENSION
     Dosage: 10 MG, QD
     Route: 048
     Dates: start: 20190816
  13. MIDODRINE [Concomitant]
     Active Substance: MIDODRINE
  14. LACTULOSE. [Concomitant]
     Active Substance: LACTULOSE

REACTIONS (2)
  - Product dose omission [Unknown]
  - Circulatory collapse [Not Recovered/Not Resolved]

NARRATIVE: CASE EVENT DATE: 20190826
